FAERS Safety Report 5244224-2 (Version None)
Quarter: 2007Q1

REPORT INFORMATION
  Report Type: 
  Country: None (occurrence: None)
  Receive Date: 20061201
  Receipt Date: 20060815
  Transmission Date: 20070707
  Serious: No
  Sender: FDA-Public Use
  Company Number: 2006PV019488

PATIENT
  Age: 58 Year
  Sex: Female
  Weight: 109.3169 kg

DRUGS (14)
  1. BYETTA [Suspect]
     Indication: DIABETES MELLITUS NON-INSULIN-DEPENDENT
     Dosage: 5 MCG;BID;SC
     Route: 058
     Dates: start: 20060601
  2. ASPIRIN [Concomitant]
  3. CADUET [Concomitant]
  4. CALCITRIOL [Concomitant]
  5. CLONIDINE [Concomitant]
  6. DAILYVITE [Concomitant]
  7. HUMALOG [Concomitant]
  8. HUMULIN N [Concomitant]
  9. KAYEXALATE [Concomitant]
  10. METOPROLOL SUCCINATE [Concomitant]
  11. METOLAZONE [Concomitant]
  12. PAROXETINE HCL [Concomitant]
  13. PLAVIX [Concomitant]
  14. TORSEMIDE [Concomitant]

REACTIONS (2)
  - CONDITION AGGRAVATED [None]
  - RENAL IMPAIRMENT [None]
